FAERS Safety Report 12854401 (Version 2)
Quarter: 2016Q4

REPORT INFORMATION
  Report Type: Spontaneous
  Country: PR (occurrence: PR)
  Receive Date: 20161017
  Receipt Date: 20161207
  Transmission Date: 20170207
  Serious: No
  Sender: FDA-Public Use
  Company Number: PR-PFIZER INC-2016482748

PATIENT
  Age: 61 Year
  Sex: Male
  Weight: 95.25 kg

DRUGS (1)
  1. SUTENT [Suspect]
     Active Substance: SUNITINIB MALATE
     Indication: NEOPLASM MALIGNANT
     Dosage: 37.5 MG, ONE CAPSULE, DAILY
     Route: 048
     Dates: start: 20160624

REACTIONS (1)
  - Neoplasm progression [Unknown]
